FAERS Safety Report 16536275 (Version 2)
Quarter: 2019Q3

REPORT INFORMATION
  Report Type: Spontaneous
  Country: US (occurrence: US)
  Receive Date: 20190705
  Receipt Date: 20190726
  Transmission Date: 20191004
  Serious: Yes (Death, Other)
  Sender: FDA-Public Use
  Company Number: US-PFIZER INC-2019285537

PATIENT
  Age: 78 Year
  Sex: Female
  Weight: 59.41 kg

DRUGS (1)
  1. IBRANCE [Suspect]
     Active Substance: PALBOCICLIB
     Indication: BREAST CANCER METASTATIC
     Dosage: 75 MG, CYCLIC [D1 - 21 EVERY 28 DAYS]
     Route: 048
     Dates: start: 20190618, end: 201907

REACTIONS (4)
  - Diarrhoea [Not Recovered/Not Resolved]
  - Abdominal discomfort [Not Recovered/Not Resolved]
  - Death [Fatal]
  - Vomiting [Not Recovered/Not Resolved]
